FAERS Safety Report 11381823 (Version 8)
Quarter: 2020Q3

REPORT INFORMATION
  Report Type: Report from Study
  Country: CA (occurrence: CA)
  Receive Date: 20150814
  Receipt Date: 20200911
  Transmission Date: 20201102
  Serious: Yes (Other)
  Sender: FDA-Public Use
  Company Number: CA-UCBSA-2014022145

PATIENT
  Age: 33 Year
  Sex: Female
  Weight: 82 kg

DRUGS (56)
  1. ZINC. [Concomitant]
     Active Substance: ZINC
     Indication: PREGNANCY
     Dosage: 50 MILLIGRAM 4.5 WEEKLY
     Route: 048
     Dates: start: 20141118, end: 20150115
  2. ALVESCO [Concomitant]
     Active Substance: CICLESONIDE
     Indication: ASTHMA
     Dosage: UNK, 2X/DAY (BID)(INHALED)
     Route: 045
  3. ALVESCO [Concomitant]
     Active Substance: CICLESONIDE
     Indication: BRONCHITIS
     Dosage: 8PUFF
     Route: 045
  4. KEFLEX [Concomitant]
     Active Substance: CEPHALEXIN
     Indication: POSTOPERATIVE WOUND INFECTION
     Dosage: 250 MG, UNK
     Dates: start: 20150812
  5. TRANDOLAPRIL. [Concomitant]
     Active Substance: TRANDOLAPRIL
     Indication: HYPERTENSION
     Dosage: 1 MG, UNK
     Dates: start: 20150812, end: 20150817
  6. HEPARIN [Concomitant]
     Active Substance: HEPARIN SODIUM
     Indication: THROMBOSIS
     Dosage: UNK
     Route: 058
     Dates: start: 20150804, end: 20150804
  7. FLU VACCINE VII [Concomitant]
     Active Substance: INFLUENZA VIRUS VACCINE
     Indication: INFLUENZA
     Dosage: UNK
     Dates: start: 20141024, end: 20141024
  8. FERAMAX [Concomitant]
     Active Substance: IRON\POLYSACCHARIDES
     Indication: ANAEMIA
     Dosage: 1 DOSAGE FORM, ONCE DAILY (QD), WILL TITRATE IN DOSAGE,
     Dates: start: 20150617, end: 20150617
  9. CERTOLIZUMAB PEGOL RA [Suspect]
     Active Substance: CERTOLIZUMAB PEGOL
     Dosage: 200 MG, EV 2 WEEKS(QOW)
     Route: 058
     Dates: start: 20140909, end: 201510
  10. MAGNESIUM [Concomitant]
     Active Substance: MAGNESIUM
     Indication: PREGNANCY
     Dosage: 1 DF, 2X/WEEK
     Route: 048
     Dates: start: 20141118, end: 20150802
  11. DEXILANT [Concomitant]
     Active Substance: DEXLANSOPRAZOLE
     Indication: GASTROOESOPHAGEAL REFLUX DISEASE
     Dosage: UNKNOWN DOSE, AS NEEDED (PRN)
     Route: 048
     Dates: start: 20141118, end: 20150802
  12. CERVIDIL [Concomitant]
     Active Substance: DINOPROSTONE
     Indication: LABOUR INDUCTION
     Dosage: UNK
     Route: 067
     Dates: start: 20150801, end: 20150802
  13. ZINC. [Concomitant]
     Active Substance: ZINC
     Dosage: 50 MILLIGRAM 2.5 WEEKLY
     Route: 048
     Dates: start: 20150116, end: 20150802
  14. CHROMIUM [Concomitant]
     Active Substance: CHROMIC CHLORIDE\CHROMIUM
     Indication: PREGNANCY
     Dosage: 1 DF, 2X/WEEK
     Route: 048
  15. CHROMIUM [Concomitant]
     Active Substance: CHROMIC CHLORIDE\CHROMIUM
     Dosage: 500 MCG 4.5 WEEKLY
     Dates: start: 20141118, end: 20150115
  16. FERAMAX [Concomitant]
     Active Substance: IRON\POLYSACCHARIDES
     Dosage: 300 MILLIGRAM, ONCE DAILY (QD)
     Route: 048
     Dates: start: 20150715, end: 20150802
  17. AMOXICILLIN. [Concomitant]
     Active Substance: AMOXICILLIN
     Dosage: 250 MG, 3X/DAY (TID)
     Dates: start: 20150506, end: 20150519
  18. BENADRYL [Concomitant]
     Active Substance: DIPHENHYDRAMINE HYDROCHLORIDE
     Indication: HYPERSENSITIVITY
     Dosage: 50 MILLIGRAM, ONCE DAILY (QD)
     Route: 048
     Dates: start: 20141216, end: 20150208
  19. BENADRYL [Concomitant]
     Active Substance: DIPHENHYDRAMINE HYDROCHLORIDE
     Dosage: 75 MILLIGRAM, ONCE DAILY (QD)
     Route: 048
     Dates: start: 20141118, end: 20141215
  20. METHOTREXATE. [Concomitant]
     Active Substance: METHOTREXATE
     Indication: RHEUMATOID ARTHRITIS
     Dosage: 1 MILLILITER
     Dates: start: 20140801, end: 20140814
  21. METHOTREXATE. [Concomitant]
     Active Substance: METHOTREXATE
     Dosage: 0.8 MILLILITER
     Dates: start: 20140823, end: 20140823
  22. NOVORAPID [Concomitant]
     Active Substance: INSULIN ASPART
     Indication: TYPE 1 DIABETES MELLITUS
     Dosage: 36 INTERNATIONAL UNIT, ONCE DAILY (QD)
     Dates: start: 20141118, end: 20150802
  23. CHROMIUM [Concomitant]
     Active Substance: CHROMIC CHLORIDE\CHROMIUM
     Dosage: 500 MCG 2.5 WEEKLY
     Dates: start: 20150116, end: 20150802
  24. ALVESCO [Concomitant]
     Active Substance: CICLESONIDE
     Dosage: 1200 MICROGRAM, ONCE DAILY (QD)
     Route: 045
  25. CERTOLIZUMAB PEGOL RA [Suspect]
     Active Substance: CERTOLIZUMAB PEGOL
     Indication: RHEUMATOID ARTHRITIS
     Dosage: 400 MG, EV 2 WEEKS(QOW)
     Route: 058
     Dates: start: 20140729, end: 20140826
  26. ALVESCO [Concomitant]
     Active Substance: CICLESONIDE
     Dosage: 4PUFF
     Route: 045
  27. AMOXICILLIN. [Concomitant]
     Active Substance: AMOXICILLIN
     Indication: BRONCHITIS
     Dosage: 250 MG, 3X/DAY (TID)
     Dates: start: 20150112, end: 20150127
  28. FENTANYL. [Concomitant]
     Active Substance: FENTANYL
     Indication: PROCEDURAL PAIN
     Dosage: UNK
     Dates: start: 20150802, end: 20150803
  29. CANESTEN [Concomitant]
     Active Substance: CLOTRIMAZOLE
     Indication: FUNGAL INFECTION
     Dosage: UNK
     Route: 061
     Dates: start: 20150520, end: 20150526
  30. METHOTREXATE. [Concomitant]
     Active Substance: METHOTREXATE
     Dosage: 0.5 MILLILITER
     Dates: start: 20140829, end: 20140829
  31. SELENIUM [Concomitant]
     Active Substance: SELENIUM
     Dosage: 100 MICROGRAM 2.5 WEEKLY
     Route: 048
     Dates: start: 20141118, end: 20150802
  32. MULTIVITAMIN [Concomitant]
     Active Substance: VITAMINS
     Indication: PREGNANCY
     Dosage: 1 DF, ONCE DAILY (QD)
     Route: 048
     Dates: start: 20141118, end: 20150115
  33. MULTIVITAMIN [Concomitant]
     Active Substance: VITAMINS
     Dosage: 1 DF, ONCE DAILY (QD)
     Route: 048
     Dates: start: 20150116, end: 20150208
  34. VENTOLIN [Concomitant]
     Active Substance: ALBUTEROL SULFATE
     Indication: ASTHMA
     Dosage: MULTIPLE REGIMEN AS NEEDED
     Route: 045
     Dates: start: 20150108, end: 20150214
  35. FERAMAX [Concomitant]
     Active Substance: IRON\POLYSACCHARIDES
     Indication: RED BLOOD CELL ABNORMALITY
     Dosage: 150 MG, ONCE DAILY (QD)
     Route: 048
     Dates: start: 20150624, end: 20150714
  36. OXYTOCIN. [Concomitant]
     Active Substance: OXYTOCIN
     Indication: LABOUR INDUCTION
     Dosage: 20 MLS, HOURLY
     Route: 042
     Dates: start: 20150802, end: 20150802
  37. NAPROXEN. [Concomitant]
     Active Substance: NAPROXEN
     Indication: PROCEDURAL PAIN
     Dosage: 1 (UNITS UNSPECIFIED) , 2X/DAY (BID)
     Dates: start: 20150804
  38. CAFFEINE. [Concomitant]
     Active Substance: CAFFEINE
     Indication: BLOOD GLUCOSE DECREASED
     Dosage: 1 SERVING DAY
     Route: 048
     Dates: start: 20141118, end: 20150208
  39. HYDROCHLOROTHIAZIDE. [Concomitant]
     Active Substance: HYDROCHLOROTHIAZIDE
     Indication: HYPERTENSION
     Dosage: 115?200 ML PER DAY
  40. LIPITOR [Concomitant]
     Active Substance: ATORVASTATIN CALCIUM
     Indication: BLOOD CHOLESTEROL
     Dosage: 10 MILLIGRAM, ONCE DAILY (QD)
     Route: 048
     Dates: start: 20141118, end: 20141215
  41. TYLENOL [Concomitant]
     Active Substance: ACETAMINOPHEN
     Indication: MIGRAINE
     Dosage: 3 GRAM, ONCE DAILY (QD)
     Route: 048
     Dates: start: 20141118, end: 20150802
  42. VITAMIN D [VITAMIN D NOS] [Concomitant]
     Active Substance: VITAMIN D NOS
     Indication: PRODUCT USED FOR UNKNOWN INDICATION
     Dosage: 1000 INTERNATIONAL UNIT 4.5 WEEKLY
     Route: 048
     Dates: start: 20141118, end: 20150115
  43. CERTOLIZUMAB PEGOL RA [Suspect]
     Active Substance: CERTOLIZUMAB PEGOL
     Dosage: UNK
     Route: 058
     Dates: start: 2015, end: 201512
  44. PRENATAL VITAMINS [Concomitant]
     Active Substance: VITAMINS
     Indication: PREGNANCY
     Dosage: 1 DF, ONCE DAILY (QD)
     Route: 048
     Dates: start: 20141225, end: 20150802
  45. FOLIC ACID. [Concomitant]
     Active Substance: FOLIC ACID
     Indication: PREGNANCY
     Dosage: 5 MG, ONCE DAILY (QD)
     Route: 048
  46. ALVESCO [Concomitant]
     Active Substance: CICLESONIDE
     Dosage: 400 MICROGRAM, ONCE DAILY (QD)
     Route: 045
  47. VITAMIN C [Concomitant]
     Active Substance: ASCORBIC ACID
     Indication: PROPHYLAXIS
     Dosage: 1000 MILLIGRAM 4.5 WEEKLY
     Route: 048
     Dates: start: 20141118, end: 20150115
  48. VITAMIN C [Concomitant]
     Active Substance: ASCORBIC ACID
     Dosage: 1000 MILLIGRAM 4.5 WEEKLY
     Route: 048
     Dates: start: 20150116, end: 20150802
  49. VITAMIN B COMPLEX [Concomitant]
     Active Substance: CYANOCOBALAMIN\DEXPANTHENOL\NIACINAMIDE\PYRIDOXINE HYDROCHLORIDE\RIBOFLAVIN 5^-PHOSPHATE SODIUM\THIAMINE HYDROCHLORIDE\VITAMIN B COMPLEX
     Dosage: 1 DOSAGE FORM 2.5 WEEKLY
     Route: 048
     Dates: start: 20141118, end: 20150115
  50. CERTOLIZUMAB PEGOL RA [Suspect]
     Active Substance: CERTOLIZUMAB PEGOL
     Dosage: UNK
  51. VITAMIN B12 [Concomitant]
     Active Substance: CYANOCOBALAMIN
     Indication: PREGNANCY
     Dosage: 1 DF, 2X/WEEK
     Route: 048
  52. ALVESCO [Concomitant]
     Active Substance: CICLESONIDE
     Dosage: 6PUFF
     Route: 045
  53. ALVESCO [Concomitant]
     Active Substance: CICLESONIDE
     Dosage: 800 MICROGRAM, ONCE DAILY (QD)
     Route: 045
  54. SELENIUM [Concomitant]
     Active Substance: SELENIUM
     Indication: PRODUCT USED FOR UNKNOWN INDICATION
     Dosage: 100 MICROGRAM 4.5 WEEKLY
     Route: 048
     Dates: start: 20141118, end: 20150115
  55. VITAMIN B COMPLEX [Concomitant]
     Active Substance: CYANOCOBALAMIN\DEXPANTHENOL\NIACINAMIDE\PYRIDOXINE HYDROCHLORIDE\RIBOFLAVIN 5^-PHOSPHATE SODIUM\THIAMINE HYDROCHLORIDE\VITAMIN B COMPLEX
     Indication: PRODUCT USED FOR UNKNOWN INDICATION
     Dosage: 1 DOSAGE FORM 2.5 WEEKLY
     Route: 048
     Dates: start: 20150116, end: 20150802
  56. VITAMIN D [VITAMIN D NOS] [Concomitant]
     Active Substance: VITAMIN D NOS
     Dosage: 1000 INTERNATIONAL UNIT 2.5 WEEKLY
     Route: 048
     Dates: start: 20150116, end: 20150802

REACTIONS (19)
  - Placental insufficiency [Recovered/Resolved]
  - Anisocytosis [Recovered/Resolved]
  - Blood glucose abnormal [Recovered/Resolved]
  - Weight decreased [Not Recovered/Not Resolved]
  - Blood glucose decreased [Recovered/Resolved]
  - Hypertension [Recovered/Resolved]
  - Premature delivery [Unknown]
  - Bronchitis [Recovered/Resolved]
  - Hypothyroidism [Unknown]
  - Pneumonia [Recovered/Resolved]
  - Laryngitis [Recovered/Resolved]
  - Maternal exposure before pregnancy [Unknown]
  - Maternal exposure during breast feeding [Unknown]
  - Hyperaesthesia [Recovered/Resolved]
  - Breast mass [Recovered/Resolved]
  - Hyperthyroidism [Recovered/Resolved]
  - Gastroenteritis viral [Recovered/Resolved]
  - Vaginal haemorrhage [Recovered/Resolved]
  - Postoperative wound infection [Recovered/Resolved]

NARRATIVE: CASE EVENT DATE: 201407
